FAERS Safety Report 6949215 (Version 3)
Quarter: 2012Q4

REPORT INFORMATION
  Report Type: 
  Country: CA (occurrence: CA)
  Receive Date: 20090324
  Receipt Date: 20121031
  Transmission Date: 20130627
  Serious: Yes (Other)
  Sender: FDA-Public Use
  Company Number: PHHY2009CA09284

PATIENT
  Sex: Male

DRUGS (1)
  1. ZOMETA [Suspect]
     Indication: PROSTATE CANCER
     Dosage: 4 mg, every 4 weeks
     Route: 042
     Dates: start: 20080616

REACTIONS (8)
  - Spinal disorder [Unknown]
  - Bone pain [Unknown]
  - Malaise [Unknown]
  - Fatigue [Unknown]
  - Pain [Unknown]
  - Constipation [Unknown]
  - Prostatic specific antigen increased [Unknown]
  - Blood calcium decreased [Unknown]
